FAERS Safety Report 5990781-8 (Version None)
Quarter: 2008Q4

REPORT INFORMATION
  Report Type: 
  Country: None (occurrence: None)
  Receive Date: 20081211
  Receipt Date: 20081205
  Transmission Date: 20090506
  Serious: Yes (Hospitalization)
  Sender: FDA-Public Use
  Company Number: US-BIOGENIDEC-2008BI028371

PATIENT
  Age: 30 Year
  Sex: Female

DRUGS (3)
  1. TYSABRI [Suspect]
     Indication: MULTIPLE SCLEROSIS
     Route: 042
     Dates: start: 20080613, end: 20081001
  2. CIPRO [Concomitant]
  3. ZANAFLEX [Concomitant]

REACTIONS (6)
  - ALOPECIA [None]
  - BLOOD GLUCOSE DECREASED [None]
  - FUNGAL INFECTION [None]
  - MUSCULAR WEAKNESS [None]
  - URINARY TRACT INFECTION [None]
  - VISION BLURRED [None]
